FAERS Safety Report 10607774 (Version 5)
Quarter: 2015Q4

REPORT INFORMATION
  Report Type: Spontaneous
  Country: FR (occurrence: FR)
  Receive Date: 20141125
  Receipt Date: 20151029
  Transmission Date: 20160304
  Serious: Yes (Other)
  Sender: FDA-Public Use
  Company Number: FR-JNJFOC-20140714217

PATIENT
  Age: 40 Year
  Sex: Male
  Weight: 45 kg

DRUGS (25)
  1. PREZISTA [Suspect]
     Active Substance: DARUNAVIR ETHANOLATE
     Indication: PRODUCT USED FOR UNKNOWN INDICATION
     Route: 048
     Dates: start: 20141020
  2. FUZEON [Suspect]
     Active Substance: ENFUVIRTIDE
     Indication: PRODUCT USED FOR UNKNOWN INDICATION
     Route: 042
     Dates: start: 20141007
  3. TIVICAY [Suspect]
     Active Substance: DOLUTEGRAVIR SODIUM
     Indication: PRODUCT USED FOR UNKNOWN INDICATION
     Route: 065
     Dates: start: 20141020
  4. OLIMEL [Concomitant]
     Active Substance: AMINO ACIDS\DEXTROSE\SOYBEAN OIL
     Route: 065
  5. RILPIVIRINE [Suspect]
     Active Substance: RILPIVIRINE
     Indication: PRODUCT USED FOR UNKNOWN INDICATION
     Route: 042
     Dates: start: 20141022
  6. PARACETAMOL [Concomitant]
     Active Substance: ACETAMINOPHEN
     Dosage: 500 MG X 4
     Route: 065
  7. INTELENCE [Suspect]
     Active Substance: ETRAVIRINE
     Indication: PRODUCT USED FOR UNKNOWN INDICATION
     Route: 048
  8. WELLVONE [Concomitant]
     Active Substance: ATOVAQUONE
     Dosage: MORNING AND EVENING
     Route: 065
  9. RITONAVIR. [Suspect]
     Active Substance: RITONAVIR
     Indication: DYSPEPSIA
     Route: 065
     Dates: start: 20141008
  10. PANTOPRAZOLE [Concomitant]
     Active Substance: PANTOPRAZOLE SODIUM
     Dosage: 20: 1 IN THE EVENING
     Route: 065
  11. DECAN (FRANCE) [Concomitant]
     Active Substance: MINERALS
     Route: 065
  12. PREZISTA [Suspect]
     Active Substance: DARUNAVIR ETHANOLATE
     Indication: PRODUCT USED FOR UNKNOWN INDICATION
     Route: 048
  13. AZIDOTHYMIDINE [Suspect]
     Active Substance: ZIDOVUDINE
     Indication: PRODUCT USED FOR UNKNOWN INDICATION
     Route: 042
     Dates: start: 20141007
  14. UVEDOSE [Concomitant]
     Active Substance: CHOLECALCIFEROL
     Dosage: 1 AMPOULE EVERY 14 DAYS
     Route: 065
  15. ZOPHREN [Concomitant]
     Active Substance: ONDANSETRON
     Dosage: MORNING AND EVENING
     Route: 065
  16. CITALOPRAM [Concomitant]
     Active Substance: CITALOPRAM HYDROBROMIDE
     Dosage: MORNING
     Route: 065
  17. CERNEVIT [Concomitant]
     Active Substance: VITAMINS
     Dosage: INFUSION USING THE IMPLANTABLE VENOUS ACCESS SYSTEM ON MONDAYS, WEDNESDAYS, THURSDAYS AND SATURDAYS
     Route: 065
  18. TRILEPTAL [Concomitant]
     Active Substance: OXCARBAZEPINE
     Dosage: 150: MORNING AND EVENING
     Route: 065
  19. LEVOTHYROX [Concomitant]
     Active Substance: LEVOTHYROXINE
     Dosage: MORNING
     Route: 065
  20. AMINOMIX [Concomitant]
     Route: 065
  21. PREZISTA [Suspect]
     Active Substance: DARUNAVIR ETHANOLATE
     Indication: PRODUCT USED FOR UNKNOWN INDICATION
     Route: 048
     Dates: start: 20141008
  22. RITONAVIR. [Suspect]
     Active Substance: RITONAVIR
     Indication: DYSPEPSIA
     Route: 065
     Dates: start: 20141020
  23. FENTANYL. [Concomitant]
     Active Substance: FENTANYL
     Route: 065
  24. PHOCYTAN [Concomitant]
     Active Substance: .ALPHA.-GLUCOSE-1-PHOSPHATE
     Route: 065
  25. MAGNESIUM SULFATE. [Concomitant]
     Active Substance: MAGNESIUM SULFATE
     Route: 065

REACTIONS (8)
  - Drug ineffective [Unknown]
  - Blood disorder [Unknown]
  - Infection [Recovered/Resolved]
  - Device related infection [Unknown]
  - Vomiting [Recovering/Resolving]
  - Drug prescribing error [Unknown]
  - Overdose [Unknown]
  - Treatment noncompliance [Unknown]

NARRATIVE: CASE EVENT DATE: 20141008
